FAERS Safety Report 23531610 (Version 1)
Quarter: 2024Q1

REPORT INFORMATION
  Report Type: Spontaneous
  Country: US (occurrence: US)
  Receive Date: 20240216
  Receipt Date: 20240216
  Transmission Date: 20240409
  Serious: No
  Sender: FDA-Public Use
  Company Number: US-Eisai-EC-2024-158875

PATIENT
  Age: 35 Year
  Sex: Female

DRUGS (6)
  1. LENVIMA [Suspect]
     Active Substance: LENVATINIB
     Indication: Endometrial cancer
     Dosage: DOSE AND FREQUENCY UNKNOWN
     Route: 048
     Dates: start: 20240130
  2. LENVIMA [Suspect]
     Active Substance: LENVATINIB
     Indication: Cervix carcinoma
  3. JEMPERLI [Concomitant]
     Active Substance: DOSTARLIMAB-GXLY
  4. TYLENOL [Concomitant]
     Active Substance: ACETAMINOPHEN
  5. GABAPENTIN [Concomitant]
     Active Substance: GABAPENTIN
  6. MOTRIN [Concomitant]
     Active Substance: IBUPROFEN

REACTIONS (5)
  - Headache [Unknown]
  - Decreased appetite [Unknown]
  - Blood thyroid stimulating hormone abnormal [Unknown]
  - Chest pain [Unknown]
  - Abdominal pain [Unknown]

NARRATIVE: CASE EVENT DATE: 20240101
